FAERS Safety Report 12117884 (Version 2)
Quarter: 2016Q1

REPORT INFORMATION
  Report Type: Spontaneous
  Country: RO (occurrence: RO)
  Receive Date: 20160226
  Receipt Date: 20160319
  Transmission Date: 20160526
  Serious: Yes (Death)
  Sender: FDA-Public Use
  Company Number: RO-AMGEN-ROUSP2016024002

PATIENT
  Age: 56 Year
  Sex: Male
  Weight: 35 kg

DRUGS (1)
  1. ENBREL [Suspect]
     Active Substance: ETANERCEPT
     Indication: ANKYLOSING SPONDYLITIS
     Dosage: 50 MG, EVERY 7 DAYS
     Route: 058
     Dates: start: 20160201, end: 20160210

REACTIONS (2)
  - Cardio-respiratory arrest [Fatal]
  - Renal failure [Fatal]
